FAERS Safety Report 21357157 (Version 4)
Quarter: 2024Q2

REPORT INFORMATION
  Report Type: Report from Study
  Country: US (occurrence: US)
  Receive Date: 20220921
  Receipt Date: 20240614
  Transmission Date: 20240716
  Serious: Yes (Other)
  Sender: FDA-Public Use
  Company Number: US-ABBVIE-4127229

PATIENT
  Sex: Female

DRUGS (5)
  1. HUMIRA [Suspect]
     Active Substance: ADALIMUMAB
     Indication: Psoriatic arthropathy
     Dosage: CITRATE FREE
     Route: 058
     Dates: end: 202201
  2. HUMIRA [Suspect]
     Active Substance: ADALIMUMAB
     Route: 058
     Dates: start: 202209
  3. EMGALITY [Concomitant]
     Active Substance: GALCANEZUMAB-GNLM
     Indication: Product used for unknown indication
     Dosage: A PEN SHOT OF EMGALITY EACH MONTH.
     Dates: start: 2018
  4. Pfizer/BioNTech [Concomitant]
     Indication: COVID-19 immunisation
     Dosage: FIRST DOSE/ ONE IN ONE DAY
     Route: 030
     Dates: start: 20210501, end: 20210501
  5. Pfizer/BioNTech [Concomitant]
     Indication: COVID-19 immunisation
     Dosage: SECOND  DOSE/ ONE IN ONE DAY
     Route: 030
     Dates: start: 20210613, end: 20210613

REACTIONS (10)
  - Surgery [Recovering/Resolving]
  - Diverticulitis [Recovered/Resolved]
  - Therapeutic product effect decreased [Unknown]
  - Inflammation [Recovering/Resolving]
  - Brain fog [Recovering/Resolving]
  - Psoriatic arthropathy [Not Recovered/Not Resolved]
  - Pain [Unknown]
  - Diverticulitis [Unknown]
  - Arthralgia [Unknown]
  - Colectomy [Unknown]

NARRATIVE: CASE EVENT DATE: 20220101
